FAERS Safety Report 9203587 (Version 2)
Quarter: 2013Q4

REPORT INFORMATION
  Report Type: Report from Study
  Country: FR (occurrence: FR)
  Receive Date: 20130402
  Receipt Date: 20131129
  Transmission Date: 20140711
  Serious: Yes (Death)
  Sender: FDA-Public Use
  Company Number: PHHY2013FR031069

PATIENT
  Age: 56 Year
  Sex: Male
  Weight: 85 kg

DRUGS (4)
  1. AMN107 [Suspect]
     Indication: CHRONIC MYELOID LEUKAEMIA
     Dosage: 600 MG, DAILY
     Route: 048
     Dates: start: 20130315
  2. KARDEGIC [Concomitant]
     Indication: CARDIOMYOPATHY
     Dosage: 75 MG, DAILY
  3. LASILIX [Concomitant]
     Dosage: 60 MG, DAILY
  4. HEMIGOXINE [Concomitant]
     Dosage: 1 DF, QD

REACTIONS (1)
  - Cardiac arrest [Fatal]
